FAERS Safety Report 5147145-9 (Version None)
Quarter: 2006Q4

REPORT INFORMATION
  Report Type: 
  Country: None (occurrence: None)
  Receive Date: 20061108
  Receipt Date: 20061108
  Transmission Date: 20070319
  Serious: Yes (Life-Threatening, Hospitalization)
  Sender: FDA-Public Use
  Company Number: None

PATIENT
  Age: 52 Year
  Sex: Male

DRUGS (2)
  1. VELCADE [Suspect]
     Indication: MANTLE CELL LYMPHOMA
     Dosage: 1.3 MG/M2      IV   (DATES OF USE: DAY 1 + 4 OF 21 DAY CYCLE--     + )
     Route: 042
  2. R-CHOP [Suspect]
     Indication: MANTLE CELL LYMPHOMA
     Dosage: DAY 1 OF 21 DAY CYCLE

REACTIONS (6)
  - BLOOD CREATINE INCREASED [None]
  - BLOOD UREA INCREASED [None]
  - PANCYTOPENIA [None]
  - POLYURIA [None]
  - RENAL FAILURE [None]
  - RETINAL HAEMORRHAGE [None]
